FAERS Safety Report 7344768-3 (Version None)
Quarter: 2011Q1

REPORT INFORMATION
  Report Type: 
  Country: None (occurrence: None)
  Receive Date: 20110310
  Receipt Date: 20110215
  Transmission Date: 20110831
  Serious: No
  Sender: FDA-Public Use
  Company Number: US-B.I. PHARMACEUTICALS,INC./RIDGEFIELD-2011-BP-05611BP

PATIENT
  Sex: Male

DRUGS (9)
  1. SIMVASTATIN [Concomitant]
     Indication: BLOOD CHOLESTEROL INCREASED
  2. FLUOXETINE [Concomitant]
     Indication: DEPRESSION
  3. PRILOSEC [Concomitant]
     Indication: GASTROOESOPHAGEAL REFLUX DISEASE
  4. PRADAXA [Suspect]
     Indication: HEART VALVE REPLACEMENT
  5. TAMSULOSIN [Concomitant]
     Indication: PROSTATIC DISORDER
  6. ZETIA [Concomitant]
     Indication: BLOOD CHOLESTEROL INCREASED
  7. FUROSEMIDE [Concomitant]
     Indication: FLUID RETENTION
  8. PRADAXA [Suspect]
     Indication: TRANSIENT ISCHAEMIC ATTACK
     Dosage: 300 MG
     Route: 048
     Dates: start: 20110201
  9. LISINOPRIL [Concomitant]
     Indication: HYPERTENSION

REACTIONS (1)
  - DIZZINESS [None]
